FAERS Safety Report 8294670-8 (Version None)
Quarter: 2012Q2

REPORT INFORMATION
  Report Type: 
  Country: None (occurrence: None)
  Receive Date: 20120418
  Receipt Date: 20120410
  Transmission Date: 20120825
  Serious: Yes (Hospitalization, Other)
  Sender: FDA-Public Use
  Company Number: US-ASTELLAS-2012US002465

PATIENT
  Sex: Male
  Weight: 87 kg

DRUGS (15)
  1. ERLOTINIB HYDROCHLORIDE [Suspect]
     Dosage: 150 MG, UID/QD
     Route: 048
     Dates: start: 20120301, end: 20120320
  2. AMLODIPINE [Concomitant]
     Indication: PRODUCT USED FOR UNKNOWN INDICATION
     Dosage: 10 MG, UID/QD
     Route: 065
  3. COREG [Concomitant]
     Indication: PRODUCT USED FOR UNKNOWN INDICATION
     Dosage: 3.125 MG, BID
     Route: 048
  4. ZOFRAN [Concomitant]
     Indication: PRODUCT USED FOR UNKNOWN INDICATION
     Dosage: UNK
     Route: 065
  5. SPRYCEL [Suspect]
     Indication: LUNG ADENOCARCINOMA
     Dosage: 50 MG, UID/QD
     Route: 048
     Dates: start: 20120201, end: 20120218
  6. SPRYCEL [Suspect]
     Dosage: 20 MG, UID/QD
     Route: 048
     Dates: start: 20120301, end: 20120320
  7. SPRYCEL [Suspect]
     Dosage: 50 MG, UID/QD
     Route: 048
     Dates: start: 20120301, end: 20120320
  8. ADVAIR DISKUS 100/50 [Concomitant]
     Indication: PRODUCT USED FOR UNKNOWN INDICATION
     Dosage: 1PUFF, BID
  9. IPRATROPIUM BROMIDE [Concomitant]
     Indication: PRODUCT USED FOR UNKNOWN INDICATION
     Dosage: UNK
     Route: 065
  10. ERLOTINIB HYDROCHLORIDE [Suspect]
     Indication: LUNG ADENOCARCINOMA
     Dosage: 150 MG, UID/QD
     Route: 048
     Dates: start: 20120201, end: 20120201
  11. SPRYCEL [Suspect]
     Dosage: 20 MG, UID/QD
     Route: 048
     Dates: start: 20120201, end: 20120218
  12. VICODIN [Concomitant]
     Indication: PRODUCT USED FOR UNKNOWN INDICATION
     Dosage: UNK
     Route: 065
  13. XOPENEX [Concomitant]
     Indication: PRODUCT USED FOR UNKNOWN INDICATION
     Dosage: UNK
     Route: 065
  14. LEVOTHYROXINE SODIUM [Concomitant]
     Indication: PRODUCT USED FOR UNKNOWN INDICATION
     Dosage: UNK
     Route: 065
  15. PROTONIX [Concomitant]
     Indication: PRODUCT USED FOR UNKNOWN INDICATION
     Dosage: UNK
     Route: 065

REACTIONS (27)
  - PNEUMOTHORAX [None]
  - PERONEAL NERVE PALSY [None]
  - BRONCHOPLEURAL FISTULA [None]
  - ARTHRALGIA [None]
  - ASTHENIA [None]
  - RENAL FAILURE [None]
  - ATELECTASIS [None]
  - NEUROPATHY PERIPHERAL [None]
  - FATIGUE [None]
  - DYSPNOEA [None]
  - CARDIAC ENZYMES INCREASED [None]
  - VOMITING [None]
  - HYDROPNEUMOTHORAX [None]
  - RHABDOMYOLYSIS [None]
  - PNEUMONIA [None]
  - MYALGIA [None]
  - HYPOXIA [None]
  - GENERAL PHYSICAL HEALTH DETERIORATION [None]
  - ABDOMINAL PAIN [None]
  - HAEMOGLOBIN DECREASED [None]
  - SOMNOLENCE [None]
  - PLEURAL EFFUSION [None]
  - ASTHMA [None]
  - DECREASED APPETITE [None]
  - NAUSEA [None]
  - RASH MACULO-PAPULAR [None]
  - DYSPEPSIA [None]
